FAERS Safety Report 9767513 (Version 2)
Quarter: 2014Q1

REPORT INFORMATION
  Report Type: Report from Study
  Country: US (occurrence: US)
  Receive Date: 20131217
  Receipt Date: 20140207
  Transmission Date: 20141002
  Serious: Yes (Other)
  Sender: FDA-Public Use
  Company Number: US-ACTELION-A-US2013-92295

PATIENT
  Age: 5 Year
  Sex: Female

DRUGS (2)
  1. TRACLEER [Suspect]
     Indication: PULMONARY HYPERTENSION
     Dosage: 31.25 MG, BID
     Route: 048
     Dates: start: 201112
  2. SILDENAFIL [Concomitant]

REACTIONS (2)
  - Gastrointestinal tube insertion [Recovered/Resolved]
  - Malaise [Recovered/Resolved]
